FAERS Safety Report 7821716-0 (Version None)
Quarter: 2011Q4

REPORT INFORMATION
  Report Type: 
  Country: None (occurrence: None)
  Receive Date: 20111018
  Receipt Date: 20101115
  Transmission Date: 20120403
  Serious: No
  Sender: FDA-Public Use
  Company Number: US-ASTRAZENECA-2010SE28656

PATIENT
  Age: 788 Month
  Sex: Female

DRUGS (3)
  1. SPIRIVA [Concomitant]
  2. LUMIGAN EYE DROPS [Concomitant]
  3. SYMBICORT [Suspect]
     Dosage: 640 MCG BID
     Route: 055
     Dates: start: 20100401

REACTIONS (3)
  - ORAL CANDIDIASIS [None]
  - THROAT IRRITATION [None]
  - DRUG DOSE OMISSION [None]
